FAERS Safety Report 20759393 (Version 1)
Quarter: 2022Q2

REPORT INFORMATION
  Report Type: Spontaneous
  Country: US (occurrence: US)
  Receive Date: 20220427
  Receipt Date: 20220427
  Transmission Date: 20220720
  Serious: No
  Sender: FDA-Public Use
  Company Number: US-BioHaven Pharmaceuticals-2022BHV000330

PATIENT
  Age: 53 Year
  Sex: Male

DRUGS (3)
  1. NURTEC ODT [Suspect]
     Active Substance: RIMEGEPANT SULFATE
     Indication: Migraine
     Route: 048
     Dates: start: 202008
  2. NURTEC ODT [Suspect]
     Active Substance: RIMEGEPANT SULFATE
     Route: 048
     Dates: start: 202106, end: 202201
  3. GABAPENTIN [Concomitant]
     Active Substance: GABAPENTIN
     Indication: Sleep disorder
     Route: 065

REACTIONS (1)
  - Drug ineffective [Not Recovered/Not Resolved]
